FAERS Safety Report 23803326 (Version 1)
Quarter: 2024Q2

REPORT INFORMATION
  Report Type: Spontaneous
  Country: US (occurrence: None)
  Receive Date: 20240430
  Receipt Date: 20240430
  Transmission Date: 20240715
  Serious: Yes (Hospitalization)
  Sender: FDA-Public Use
  Company Number: None

PATIENT
  Sex: Female

DRUGS (2)
  1. CAPECITABINE [Suspect]
     Active Substance: CAPECITABINE
     Indication: Rectal cancer
     Dosage: DOSE AND FREQUENCY: 2 TABS IN THE MORNING AND 3 TABLETS IN EVENING, 14 DAYS ON AND 7 DAYS OFF??? ?
     Route: 048
     Dates: start: 202305
  2. NITROGLYCERIN [Concomitant]
     Active Substance: NITROGLYCERIN

REACTIONS (1)
  - Arteriospasm coronary [None]
